FAERS Safety Report 6203524-X (Version None)
Quarter: 2009Q2

REPORT INFORMATION
  Report Type: 
  Country: None (occurrence: None)
  Receive Date: 20090527
  Receipt Date: 20090518
  Transmission Date: 20091009
  Serious: Yes (Other)
  Sender: FDA-Public Use
  Company Number: PHHY2009GB19759

PATIENT
  Sex: Female
  Weight: 59.1 kg

DRUGS (5)
  1. ACLASTA [Suspect]
     Indication: OSTEOPOROSIS
     Dosage: 5 MG
     Dates: start: 20080523
  2. FENTANYL [Concomitant]
     Indication: PAIN
  3. ESOMEPRAZOLE MAGNESIUM [Concomitant]
     Indication: PEPTIC ULCER
     Dosage: 40 MG DAILY
     Route: 048
  4. PREDNISOLONE [Concomitant]
     Indication: LIVER TRANSPLANT
     Dosage: 2.5 MG DAILY
     Route: 048
  5. IMURAN [Concomitant]
     Indication: LIVER TRANSPLANT
     Dosage: 25 MG DAILY
     Route: 048

REACTIONS (5)
  - BONE PAIN [None]
  - CONFUSIONAL STATE [None]
  - DISORIENTATION [None]
  - FATIGUE [None]
  - MYALGIA [None]
